FAERS Safety Report 15150707 (Version 1)
Quarter: 2018Q3

REPORT INFORMATION
  Report Type: Spontaneous
  Country: JP (occurrence: JP)
  Receive Date: 20180716
  Receipt Date: 20180716
  Transmission Date: 20181010
  Serious: Yes (Hospitalization, Other)
  Sender: FDA-Public Use
  Company Number: JP-MYLANLABS-2018M1052024

PATIENT
  Age: 38 Year
  Sex: Male

DRUGS (3)
  1. ESZOPICLONE. [Suspect]
     Active Substance: ESZOPICLONE
     Indication: PRODUCT USED FOR UNKNOWN INDICATION
     Dosage: 30 TABLETS IN OVERDOSE TO ATTEMPT SUICIDE
     Route: 065
  2. BROTIZOLAM [Suspect]
     Active Substance: BROTIZOLAM
     Indication: PRODUCT USED FOR UNKNOWN INDICATION
     Dosage: 76 TABLETS IN OVERDOSE FOR FIRST SUICIDAL ATTEMPT
     Route: 065
  3. BROTIZOLAM [Suspect]
     Active Substance: BROTIZOLAM
     Dosage: 48 TABLETS IN OVERDOSE FOR SECOND SUICIDAL ATTEMPT
     Route: 065

REACTIONS (5)
  - Loss of consciousness [Recovered/Resolved]
  - Suicide attempt [Recovered/Resolved]
  - Intentional overdose [Recovered/Resolved]
  - Somnolence [Recovered/Resolved]
  - White blood cell count increased [Unknown]
